FAERS Safety Report 9595138 (Version 1)
Quarter: 2013Q4

REPORT INFORMATION
  Report Type: Report from Study
  Country: FR (occurrence: FR)
  Receive Date: 20131004
  Receipt Date: 20131004
  Transmission Date: 20140711
  Serious: Yes (Other)
  Sender: FDA-Public Use
  Company Number: FR-CELGENEUS-056-C4047-13094043

PATIENT
  Sex: Male

DRUGS (1)
  1. CC-4047 [Suspect]
     Indication: PLASMA CELL MYELOMA
     Route: 048

REACTIONS (3)
  - Tendon rupture [Unknown]
  - Arthralgia [Unknown]
  - Paraesthesia [Unknown]
